FAERS Safety Report 16124217 (Version 1)
Quarter: 2019Q1

REPORT INFORMATION
  Report Type: Spontaneous
  Country: US (occurrence: US)
  Receive Date: 20190327
  Receipt Date: 20190327
  Transmission Date: 20190418
  Serious: Yes (Other)
  Sender: FDA-Public Use
  Company Number: US-ANIPHARMA-2019-US-000492

PATIENT
  Sex: Male

DRUGS (6)
  1. CASODEX [Suspect]
     Active Substance: BICALUTAMIDE
     Indication: PROSTATE CANCER
  2. LUPRON [Suspect]
     Active Substance: LEUPROLIDE ACETATE
  3. DOCETAXEL. [Suspect]
     Active Substance: DOCETAXEL
  4. ABIRATERONE. [Suspect]
     Active Substance: ABIRATERONE ACETATE
  5. PREDNISONE. [Suspect]
     Active Substance: PREDNISONE
  6. CABAZITAXEL [Suspect]
     Active Substance: CABAZITAXEL

REACTIONS (1)
  - Disease progression [Unknown]
